FAERS Safety Report 8758018 (Version 2)
Quarter: 2012Q4

REPORT INFORMATION
  Report Type: 
  Country: US (occurrence: US)
  Receive Date: 20120828
  Receipt Date: 20120906
  Transmission Date: 20130627
  Serious: Yes (Hospitalization, Other)
  Sender: FDA-Public Use
  Company Number: US-PFIZER INC-2012207857

PATIENT
  Age: 65 Year
  Sex: Male
  Weight: 152.65 kg

DRUGS (18)
  1. CELECOXIB [Suspect]
     Indication: OSTEOARTHRITIS
     Dosage: UNK, 3x/day
     Route: 048
     Dates: start: 20120213, end: 20120822
  2. IBUPROFEN [Suspect]
     Indication: OSTEOARTHRITIS
     Dosage: UNK, 3x/day
     Route: 048
     Dates: start: 20120213, end: 20120822
  3. IBUPROFEN [Suspect]
     Indication: OSTEOARTHRITIS
     Dosage: UNK, 3x/day
     Route: 048
     Dates: start: 20120213, end: 20120822
  4. NAPROXEN [Suspect]
     Indication: OSTEOARTHRITIS
     Dosage: UNK, 3x/day
     Route: 048
     Dates: start: 20120213, end: 20120822
  5. NAPROXEN [Suspect]
     Indication: OSTEOARTHRITIS
     Dosage: UNK, 3x/day
     Route: 048
     Dates: start: 20120213, end: 20120822
  6. BLINDED NO SUBJECT DRUG [Suspect]
     Indication: OSTEOARTHRITIS
     Dosage: UNK, 3x/day
     Route: 048
     Dates: start: 20120213, end: 20120822
  7. BLINDED PLACEBO [Suspect]
     Indication: OSTEOARTHRITIS
     Dosage: UNK, 3x/day
     Route: 048
     Dates: start: 20120213, end: 20120822
  8. CELECOXIB [Suspect]
     Indication: RHEUMATOID ARTHRITIS
  9. IBUPROFEN [Suspect]
     Indication: RHEUMATOID ARTHRITIS
  10. IBUPROFEN [Suspect]
     Indication: RHEUMATOID ARTHRITIS
  11. NAPROXEN [Suspect]
     Indication: RHEUMATOID ARTHRITIS
  12. NAPROXEN [Suspect]
     Indication: RHEUMATOID ARTHRITIS
  13. BLINDED NO SUBJECT DRUG [Suspect]
     Indication: RHEUMATOID ARTHRITIS
  14. BLINDED PLACEBO [Suspect]
     Indication: RHEUMATOID ARTHRITIS
  15. MORPHINE SULFATE [Suspect]
     Dosage: 15 mg, q12hr
     Dates: end: 20120822
  16. PERCOCET [Suspect]
     Dosage: Oxycodone 5/ paracetamol 325, 2 q 4hrs prn
     Dates: end: 20120823
  17. INSULIN [Suspect]
     Dosage: U500
  18. NEXIUM [Concomitant]
     Indication: PROPHYLAXIS
     Dosage: 20 mg, 1x/day
     Route: 048
     Dates: start: 20120213

REACTIONS (2)
  - Altered state of consciousness [Recovered/Resolved]
  - Hypoglycaemia [Recovered/Resolved]
